FAERS Safety Report 9345263 (Version 2)
Quarter: 2013Q3

REPORT INFORMATION
  Report Type: Spontaneous
  Country: US (occurrence: US)
  Receive Date: 20130613
  Receipt Date: 20130722
  Transmission Date: 20140515
  Serious: No
  Sender: FDA-Public Use
  Company Number: US-009507513-1306USA003679

PATIENT
  Age: 61 Year
  Sex: Male
  Weight: 129.71 kg

DRUGS (3)
  1. ZETIA [Suspect]
     Indication: HYPERCHOLESTEROLAEMIA
     Dosage: 10 MG, ONCE DAILY
     Route: 048
     Dates: start: 2010
  2. ZETIA [Suspect]
     Indication: BLOOD CHOLESTEROL INCREASED
  3. CRESTOR [Concomitant]

REACTIONS (4)
  - Throat irritation [Recovered/Resolved]
  - Cough [Recovered/Resolved]
  - Product taste abnormal [Unknown]
  - Product physical issue [Unknown]
